FAERS Safety Report 5088646-1 (Version None)
Quarter: 2006Q3

REPORT INFORMATION
  Report Type: 
  Country: None (occurrence: None)
  Receive Date: 20060825
  Receipt Date: 20060816
  Transmission Date: 20061208
  Serious: Yes (Hospitalization)
  Sender: FDA-Public Use
  Company Number: FR-BRISTOL-MYERS SQUIBB COMPANY-13480538

PATIENT
  Age: 91 Year
  Sex: Female
  Weight: 69 kg

DRUGS (8)
  1. LOPRIL TABS [Suspect]
     Route: 048
     Dates: end: 20060717
  2. LASILIX [Suspect]
     Route: 048
  3. ALDALIX [Suspect]
     Route: 048
  4. LEXOMIL [Concomitant]
  5. OMEPRAZOLE [Concomitant]
  6. BETAHISTINE [Concomitant]
  7. LOPERAMIDE [Concomitant]
  8. MAALOX FAST BLOCKER [Concomitant]

REACTIONS (3)
  - HYPONATRAEMIA [None]
  - RENAL FAILURE [None]
  - URINARY TRACT INFECTION [None]
